FAERS Safety Report 7514728-8 (Version None)
Quarter: 2011Q2

REPORT INFORMATION
  Report Type: 
  Country: None (occurrence: None)
  Receive Date: 20110520
  Receipt Date: 20110408
  Transmission Date: 20111010
  Serious: Yes (Death)
  Sender: FDA-Public Use
  Company Number: HA11-075-AE

PATIENT
  Age: 75 Year
  Sex: Female
  Weight: 72 kg

DRUGS (10)
  1. NAPROXEN [Suspect]
     Indication: OSTEOARTHRITIS
     Dosage: ORAL, THREE TIMES DAILY
     Route: 048
     Dates: start: 20080206, end: 20101219
  2. CELECOXIB [Suspect]
     Indication: RHEUMATOID ARTHRITIS
     Dosage: ORAL, THREE TIMES DAILY
     Route: 048
     Dates: start: 20080206, end: 20101219
  3. CELECOXIB [Suspect]
     Indication: OSTEOARTHRITIS
     Dosage: ORAL, THREE TIMES DAILY
     Route: 048
     Dates: start: 20080206, end: 20101219
  4. IBUPROFEN [Suspect]
     Indication: OSTEOARTHRITIS
     Dosage: ORAL, THREE TIMES DAILY
     Route: 048
     Dates: start: 20080206, end: 20101219
  5. IBUPROFEN [Suspect]
     Indication: RHEUMATOID ARTHRITIS
     Dosage: ORAL, THREE TIMES DAILY
     Route: 048
     Dates: start: 20080206, end: 20101219
  6. PLACEBO [Suspect]
     Indication: OSTEOARTHRITIS
     Dosage: ORAL, THREE TIMES DAILY
     Route: 048
     Dates: start: 20080206, end: 20101219
  7. PLACEBO [Suspect]
     Indication: RHEUMATOID ARTHRITIS
     Dosage: ORAL, THREE TIMES DAILY
     Route: 048
     Dates: start: 20080206, end: 20101219
  8. NEXIUM [Concomitant]
  9. NAPROXEN [Suspect]
     Indication: OSTEOARTHRITIS
     Dosage: ORAL, THREE TIMES DAILY
     Route: 048
     Dates: start: 20080206, end: 20101219
  10. NAPROXEN [Suspect]
     Indication: RHEUMATOID ARTHRITIS
     Dosage: ORAL, THREE TIMES DAILY
     Route: 048
     Dates: start: 20080206, end: 20101219

REACTIONS (2)
  - COR PULMONALE [None]
  - CHRONIC OBSTRUCTIVE PULMONARY DISEASE [None]
